FAERS Safety Report 18282332 (Version 1)
Quarter: 2020Q3

REPORT INFORMATION
  Report Type: Spontaneous
  Country: PT (occurrence: PT)
  Receive Date: 20200918
  Receipt Date: 20200918
  Transmission Date: 20201103
  Serious: Yes (Other)
  Sender: FDA-Public Use
  Company Number: PT-TEVA-2020-PT-1829162

PATIENT
  Age: 22 Year
  Sex: Female

DRUGS (4)
  1. DROSPIRENONE [Suspect]
     Active Substance: DROSPIRENONE
     Indication: NASOPHARYNGEAL CANCER
     Route: 065
  2. ETHINYLESTRADIOL [Suspect]
     Active Substance: ETHINYL ESTRADIOL
     Indication: NASOPHARYNGEAL CANCER
     Route: 065
  3. NORGESTREL [Suspect]
     Active Substance: NORGESTREL
     Indication: NASOPHARYNGEAL CANCER
     Route: 065
  4. ESTRADIOL. [Suspect]
     Active Substance: ESTRADIOL
     Indication: NASOPHARYNGEAL CANCER
     Route: 065

REACTIONS (2)
  - Carotid artery thrombosis [Unknown]
  - Off label use [Unknown]
